FAERS Safety Report 11730087 (Version 1)
Quarter: 2015Q4

REPORT INFORMATION
  Report Type: Spontaneous
  Country: CN (occurrence: CN)
  Receive Date: 20151112
  Receipt Date: 20151112
  Transmission Date: 20160304
  Serious: Yes (Disabling, Other)
  Sender: FDA-Public Use
  Company Number: CN-009507513-1511CHN003828

PATIENT
  Age: 75 Year
  Weight: 72 kg

DRUGS (3)
  1. IMIPENEM AND CILASTATIN [Suspect]
     Active Substance: CILASTATIN SODIUM\IMIPENEM
     Indication: EMPHYSEMA
     Dosage: 2 G, BID
     Route: 041
     Dates: start: 20150525, end: 20150526
  2. IMIPENEM AND CILASTATIN [Suspect]
     Active Substance: CILASTATIN SODIUM\IMIPENEM
     Indication: BRONCHITIS
  3. SODIUM CHLORIDE. [Concomitant]
     Active Substance: SODIUM CHLORIDE
     Dosage: 100 ML, BID
     Route: 041
     Dates: start: 20150525, end: 20150526

REACTIONS (1)
  - Chest pain [Recovering/Resolving]

NARRATIVE: CASE EVENT DATE: 20150526
